FAERS Safety Report 6659621-8 (Version None)
Quarter: 2010Q1

REPORT INFORMATION
  Report Type: 
  Country: None (occurrence: None)
  Receive Date: 20100330
  Receipt Date: 20100318
  Transmission Date: 20100710
  Serious: Yes (Other)
  Sender: FDA-Public Use
  Company Number: US-PFIZER INC-2010035315

PATIENT
  Age: 53 Year
  Sex: Female

DRUGS (6)
  1. GEODON [Suspect]
     Indication: BIPOLAR DISORDER
     Dosage: 40 MG, 2X/DAY
  2. GEODON [Suspect]
     Dosage: 60 MG, 2X/DAY
  3. GEODON [Suspect]
     Dosage: 80 MG, 2X/DAY
     Route: 048
  4. SEROQUEL [Suspect]
     Indication: BIPOLAR DISORDER
     Dosage: 200 MG, UNK
     Route: 048
  5. COGENTIN [Suspect]
     Indication: DYSTONIA
     Dosage: 2 MG, UNK
  6. TRILEPTAL [Suspect]
     Indication: EPILEPSY

REACTIONS (7)
  - BIPOLAR DISORDER [None]
  - BLOOD CREATINE PHOSPHOKINASE INCREASED [None]
  - BLOOD PRESSURE FLUCTUATION [None]
  - BLOOD SODIUM DECREASED [None]
  - DYSTONIA [None]
  - HALLUCINATION [None]
  - HEAD INJURY [None]
